FAERS Safety Report 7406592-2 (Version None)
Quarter: 2011Q2

REPORT INFORMATION
  Report Type: 
  Country: None (occurrence: None)
  Receive Date: 20110401
  Receipt Date: 20110322
  Transmission Date: 20111010
  Serious: Yes (Hospitalization)
  Sender: FDA-Public Use
  Company Number: 029759

PATIENT
  Sex: Female
  Weight: 68.9467 kg

DRUGS (9)
  1. PHENERGAN HCL [Concomitant]
  2. LEXAPRO [Concomitant]
  3. CYANOCOBALAMIN [Concomitant]
  4. BUPROPION [Concomitant]
  5. CIMZIA [Suspect]
     Indication: CROHN'S DISEASE
     Dosage: (SUBCUTANEOUS)
     Route: 058
     Dates: start: 20100930
  6. ADVIL LIQUI-GELS [Concomitant]
  7. LEVOXYL [Concomitant]
  8. PROTONIX [Concomitant]
  9. AMBIEN [Concomitant]

REACTIONS (3)
  - ABDOMINAL ABSCESS [None]
  - PNEUMONITIS [None]
  - ATELECTASIS [None]
